FAERS Safety Report 17669133 (Version 1)
Quarter: 2020Q2

REPORT INFORMATION
  Report Type: Not Available
  Country: US (occurrence: US)
  Receive Date: 20200415
  Receipt Date: 20200415
  Transmission Date: 20200713
  Serious: Yes (Other)
  Sender: FDA-Public Use
  Company Number: US-EYEPOINT PHARMACEUTICALS, INC.-US-EYP-20-00217

PATIENT
  Age: 63 Year
  Sex: Male

DRUGS (1)
  1. DEXYCU [Suspect]
     Active Substance: DEXAMETHASONE
     Indication: POST PROCEDURAL INFLAMMATION
     Route: 031
     Dates: start: 20190403, end: 20190403

REACTIONS (2)
  - Punctate keratitis [Unknown]
  - Dry eye [Unknown]

NARRATIVE: CASE EVENT DATE: 20190503
